FAERS Safety Report 13476396 (Version 1)
Quarter: 2017Q2

REPORT INFORMATION
  Report Type: Spontaneous
  Country: US (occurrence: US)
  Receive Date: 20170424
  Receipt Date: 20170424
  Transmission Date: 20170830
  Serious: No
  Sender: FDA-Public Use
  Company Number: None

PATIENT
  Age: 69 Year
  Sex: Female
  Weight: 67.5 kg

DRUGS (8)
  1. VALIUM [Concomitant]
     Active Substance: DIAZEPAM
  2. VITAMIN D [Concomitant]
     Active Substance: CHOLECALCIFEROL
  3. VENTOLIN HFA [Suspect]
     Active Substance: ALBUTEROL SULFATE
     Indication: WHEEZING
     Dosage: 200 PUFF(S); RESPIRATORY (INHALATION); EVERY 4 HOURS?
     Route: 055
     Dates: start: 20170401, end: 20170424
  4. ADVIL [Concomitant]
     Active Substance: IBUPROFEN
  5. ASPIRIN. [Concomitant]
     Active Substance: ASPIRIN
  6. SUDAFED PE CONGESTION [Concomitant]
     Active Substance: PHENYLEPHRINE HYDROCHLORIDE
  7. VENTOLIN HFA [Suspect]
     Active Substance: ALBUTEROL SULFATE
     Indication: COUGH
     Dosage: 200 PUFF(S); RESPIRATORY (INHALATION); EVERY 4 HOURS?
     Route: 055
     Dates: start: 20170401, end: 20170424
  8. VIT B COMPLEX [Concomitant]

REACTIONS (2)
  - Dyspnoea [None]
  - Cough [None]

NARRATIVE: CASE EVENT DATE: 20170424
